FAERS Safety Report 4430428-5 (Version None)
Quarter: 2004Q3

REPORT INFORMATION
  Report Type: 
  Country: None (occurrence: None)
  Receive Date: 20040820
  Receipt Date: 20040805
  Transmission Date: 20050211
  Serious: Yes (Death, Life-Threatening)
  Sender: FDA-Public Use
  Company Number: GB-MERCK-0408GBR00060

PATIENT
  Age: 77 Year
  Sex: Male
  Weight: 71 kg

DRUGS (5)
  1. AMLODIPINE BESYLATE [Concomitant]
     Indication: MYOCARDIAL ISCHAEMIA
     Route: 065
  2. ASPIRIN [Concomitant]
     Route: 065
  3. ATENOLOL [Concomitant]
     Route: 048
  4. ATORVASTATIN CALCIUM [Concomitant]
     Route: 048
  5. VIOXX [Suspect]
     Indication: RHEUMATOID ARTHRITIS
     Route: 048
     Dates: start: 20040713, end: 20040715

REACTIONS (1)
  - MYOCARDIAL ISCHAEMIA [None]
